FAERS Safety Report 6331666-7 (Version None)
Quarter: 2009Q3

REPORT INFORMATION
  Report Type: 
  Country: None (occurrence: None)
  Receive Date: 20090827
  Receipt Date: 20090824
  Transmission Date: 20100115
  Serious: Yes (Death, Hospitalization, Other)
  Sender: FDA-Public Use
  Company Number: US-ROXANE LABORATORIES, INC.-2009-RO-00861RO

PATIENT
  Age: 9 Year
  Sex: Male

DRUGS (9)
  1. MERCAPTOPURINE [Suspect]
  2. INFLIXIMAB [Suspect]
  3. VANCOMYCIN [Suspect]
  4. TICARCILLIN-CLAVULANATE [Suspect]
  5. GANCICLOVIR [Suspect]
     Indication: CYTOMEGALOVIRUS INFECTION
  6. FOSCARNET [Suspect]
  7. IMMUNE GLOBULIN NOS [Suspect]
  8. ANTIFUNGAL THERAPY [Concomitant]
  9. ANTIVIRAL THERAPY [Concomitant]
     Indication: CYTOMEGALOVIRUS INFECTION

REACTIONS (8)
  - BRONCHOPNEUMONIA [None]
  - CYTOMEGALOVIRUS COLITIS [None]
  - DISSEMINATED CYTOMEGALOVIRAL INFECTION [None]
  - HEPATIC FAILURE [None]
  - HEPATITIS [None]
  - PNEUMONITIS [None]
  - RESPIRATORY FAILURE [None]
  - SEPSIS [None]
